FAERS Safety Report 15406285 (Version 1)
Quarter: 2018Q3

REPORT INFORMATION
  Report Type: Spontaneous
  Country: US (occurrence: US)
  Receive Date: 20180918
  Receipt Date: 20180918
  Transmission Date: 20181010
  Serious: Yes (Other)
  Sender: FDA-Public Use
  Company Number: None

PATIENT
  Age: 62 Year
  Sex: Male
  Weight: 100.35 kg

DRUGS (11)
  1. LANTUS [Concomitant]
     Active Substance: INSULIN GLARGINE
  2. ALLOPURINOL. [Concomitant]
     Active Substance: ALLOPURINOL
  3. TOPIRAMATE. [Concomitant]
     Active Substance: TOPIRAMATE
  4. DULOXETINE. [Concomitant]
     Active Substance: DULOXETINE
  5. LANSOPRAZOL [Concomitant]
     Active Substance: LANSOPRAZOLE
  6. GABAPENTIN. [Concomitant]
     Active Substance: GABAPENTIN
  7. CARBIDOPA=LEVODOPA [Concomitant]
  8. JARDIANCE [Suspect]
     Active Substance: EMPAGLIFLOZIN
     Indication: DIABETES MELLITUS
     Dosage: ?          QUANTITY:1 DF DOSAGE FORM;?
     Route: 048
     Dates: start: 20180618, end: 20180713
  9. ASA [Concomitant]
     Active Substance: ASPIRIN
  10. ATENOLOL. [Concomitant]
     Active Substance: ATENOLOL
  11. ATORVASTATIN [Concomitant]
     Active Substance: ATORVASTATIN

REACTIONS (3)
  - Back pain [None]
  - Drug dose omission [None]
  - Renal injury [None]

NARRATIVE: CASE EVENT DATE: 20180713
